FAERS Safety Report 24415158 (Version 3)
Quarter: 2024Q4

REPORT INFORMATION
  Report Type: Spontaneous
  Country: JP (occurrence: JP)
  Receive Date: 20241009
  Receipt Date: 20241203
  Transmission Date: 20250114
  Serious: Yes (Other)
  Sender: GLAXOSMITHKLINE
  Company Number: JP-GSKJP-JP2024JPN122220AA

PATIENT

DRUGS (1)
  1. DAPRODUSTAT [Suspect]
     Active Substance: DAPRODUSTAT
     Indication: Nephrogenic anaemia
     Dosage: 24 MG
     Route: 048

REACTIONS (4)
  - Nephrogenic anaemia [Unknown]
  - Disease progression [Unknown]
  - Dialysis [Unknown]
  - Therapeutic product effect incomplete [Unknown]
